FAERS Safety Report 12512885 (Version 1)
Quarter: 2016Q2

REPORT INFORMATION
  Report Type: Spontaneous
  Country: US (occurrence: US)
  Receive Date: 20160630
  Receipt Date: 20160630
  Transmission Date: 20160815
  Serious: Yes (Death)
  Sender: FDA-Public Use
  Company Number: US-JNJFOC-20160511586

PATIENT
  Age: 40 Year
  Sex: Female

DRUGS (1)
  1. XARELTO [Suspect]
     Active Substance: RIVAROXABAN
     Indication: FACTOR V DEFICIENCY
     Route: 048

REACTIONS (5)
  - Nipple exudate bloody [Fatal]
  - Product use issue [Unknown]
  - Ear haemorrhage [Fatal]
  - Off label use [Unknown]
  - Vaginal haemorrhage [Fatal]
